FAERS Safety Report 5052571-2 (Version None)
Quarter: 2006Q3

REPORT INFORMATION
  Report Type: 
  Country: None (occurrence: None)
  Receive Date: 20060717
  Receipt Date: 20060713
  Transmission Date: 20061208
  Serious: Yes (Hospitalization)
  Sender: FDA-Public Use
  Company Number: 1-27414249

PATIENT
  Age: 35 Year
  Sex: Female

DRUGS (2)
  1. TAGAMET [Suspect]
     Route: 065
     Dates: start: 20051030
  2. REBIF [Concomitant]

REACTIONS (10)
  - CARDIAC FAILURE CONGESTIVE [None]
  - HYPERSENSITIVITY [None]
  - LOSS OF CONSCIOUSNESS [None]
  - NAUSEA [None]
  - PRURITUS [None]
  - SINUS TACHYCARDIA [None]
  - SYNCOPE VASOVAGAL [None]
  - THROAT TIGHTNESS [None]
  - URTICARIA [None]
  - VESTIBULITIS [None]
